FAERS Safety Report 23932483 (Version 1)
Quarter: 2024Q2

REPORT INFORMATION
  Report Type: Other
  Country: AE (occurrence: None)
  Receive Date: 20240603
  Receipt Date: 20240603
  Transmission Date: 20240716
  Serious: Yes (Other)
  Sender: FDA-Public Use
  Company Number: AE-ROCHE-3569423

PATIENT
  Sex: Male

DRUGS (2)
  1. TECENTRIQ [Suspect]
     Active Substance: ATEZOLIZUMAB
     Indication: Product used for unknown indication
     Route: 065
  2. AVASTIN [Suspect]
     Active Substance: BEVACIZUMAB
     Indication: Product used for unknown indication
     Route: 065

REACTIONS (7)
  - Vascular access complication [Unknown]
  - Splenomegaly [Unknown]
  - Lymphadenopathy [Unknown]
  - Umbilical hernia [Unknown]
  - Cerebral small vessel ischaemic disease [Unknown]
  - Thrombosis [Unknown]
  - Decreased immune responsiveness [Unknown]
